FAERS Safety Report 6101137-1 (Version None)
Quarter: 2009Q1

REPORT INFORMATION
  Report Type: 
  Country: None (occurrence: None)
  Receive Date: 20090304
  Receipt Date: 20090219
  Transmission Date: 20090719
  Serious: Yes (Hospitalization)
  Sender: FDA-Public Use
  Company Number: BG-BAYER-BG-2006-038471

PATIENT
  Age: 62 Year
  Sex: Female
  Weight: 61 kg

DRUGS (8)
  1. CAMPATH [Suspect]
     Indication: CHRONIC LYMPHOCYTIC LEUKAEMIA
     Route: 042
     Dates: start: 20060508, end: 20060508
  2. CAMPATH [Suspect]
     Route: 042
     Dates: start: 20060509, end: 20060509
  3. CAMPATH [Suspect]
     Route: 042
     Dates: start: 20060510, end: 20060510
  4. CAMPATH [Suspect]
     Route: 042
     Dates: start: 20060516, end: 20061013
  5. FLUDARA [Suspect]
     Indication: CHRONIC LYMPHOCYTIC LEUKAEMIA
     Route: 042
     Dates: start: 20060516, end: 20061013
  6. ACYCLOVIR [Concomitant]
     Indication: PROPHYLAXIS
     Route: 048
     Dates: start: 20060516, end: 20061122
  7. NORFLOXACIN [Concomitant]
     Route: 065
     Dates: start: 20061119, end: 20061121
  8. CEFUROXIME [Concomitant]
     Route: 065
     Dates: start: 20061119, end: 20061121

REACTIONS (1)
  - HEPATITIS CHOLESTATIC [None]
